FAERS Safety Report 8793317 (Version 1)
Quarter: 2012Q4

REPORT INFORMATION
  Report Type: 
  Country: GB (occurrence: GB)
  Receive Date: 20120917
  Receipt Date: 20120917
  Transmission Date: 20130627
  Serious: Yes (Disabling, Other)
  Sender: FDA-Public Use
  Company Number: GB-ASTRAZENECA-2012SE70514

PATIENT
  Age: 66 Year
  Sex: Female
  Weight: 70 kg

DRUGS (8)
  1. OMEPRAZOLE [Suspect]
     Route: 048
     Dates: start: 20120820
  2. CANDESARTAN [Concomitant]
     Dates: start: 20120503, end: 20120531
  3. CANDESARTAN [Concomitant]
     Dates: start: 20120723, end: 20120820
  4. CANDESARTAN [Concomitant]
     Dates: start: 20120525, end: 20120723
  5. CANDESARTAN [Concomitant]
     Dates: start: 20120528, end: 20120625
  6. ERYTHROMYCIN [Concomitant]
     Dates: start: 20120706, end: 20120707
  7. VENTOLIN [Concomitant]
     Dates: start: 20120821
  8. VOLUMATIC [Concomitant]
     Dates: start: 20120821, end: 20120822

REACTIONS (3)
  - Blood pressure increased [Recovered/Resolved]
  - Dizziness [Recovered/Resolved]
  - Wheezing [Recovered/Resolved]
